FAERS Safety Report 9790172 (Version 2)
Quarter: 2014Q1

REPORT INFORMATION
  Report Type: Spontaneous
  Country: IL (occurrence: IL)
  Receive Date: 20131231
  Receipt Date: 20140103
  Transmission Date: 20141002
  Serious: Yes (Hospitalization)
  Sender: FDA-Public Use
  Company Number: IL-AMGEN-ISRSP2013091299

PATIENT
  Age: 68 Year
  Sex: Female
  Weight: 47 kg

DRUGS (5)
  1. PROLIA [Suspect]
     Indication: OSTEOPOROSIS
     Dosage: 60 MG, UNK
     Route: 058
     Dates: start: 201306, end: 201306
  2. FORTEO [Concomitant]
     Dosage: UNK
     Route: 065
  3. ZOLEDRONIC ACID [Concomitant]
     Dosage: UNK
     Route: 065
  4. BISPHOSPHONATES [Concomitant]
     Route: 065
  5. ARIXTRA [Concomitant]
     Dosage: 5 MG, QD
     Route: 058
     Dates: start: 201206, end: 201306

REACTIONS (2)
  - Haemorrhage intracranial [Recovered/Resolved]
  - Haemorrhagic stroke [Unknown]
